FAERS Safety Report 10128486 (Version 1)
Quarter: 2014Q2

REPORT INFORMATION
  Report Type: Spontaneous
  Country: US (occurrence: None)
  Receive Date: 20140425
  Receipt Date: 20140425
  Transmission Date: 20141212
  Serious: Yes (Other)
  Sender: FDA-Public Use
  Company Number: None

PATIENT
  Age: 52 Year
  Sex: Female

DRUGS (3)
  1. RITUXAN [Suspect]
     Indication: RHEUMATOID ARTHRITIS
     Dosage: 1000 MG DAY 1 AND DAY 14 INTRAVENOUS
     Route: 042
     Dates: start: 20140411, end: 20140411
  2. TYLENOL [Concomitant]
  3. SOLUMEDROL IV [Concomitant]

REACTIONS (5)
  - Pruritus [None]
  - Skin irritation [None]
  - Dizziness [None]
  - Nausea [None]
  - Pain [None]
